FAERS Safety Report 24552945 (Version 1)
Quarter: 2024Q4

REPORT INFORMATION
  Report Type: Spontaneous
  Country: US (occurrence: US)
  Receive Date: 20241027
  Receipt Date: 20241027
  Transmission Date: 20250114
  Serious: Yes (Other)
  Sender: ABBVIE
  Company Number: US-ABBVIE-5977382

PATIENT
  Age: 73 Year

DRUGS (1)
  1. MAVYRET [Suspect]
     Active Substance: GLECAPREVIR\PIBRENTASVIR
     Indication: Hepatitis C
     Dosage: UNIT DOSE 100.40 MILLIGRAM
     Route: 048
     Dates: start: 20241002

REACTIONS (4)
  - Renal transplant [Unknown]
  - Blood bilirubin increased [Unknown]
  - Hepatitis C [Unknown]
  - Hepatic cirrhosis [Unknown]

NARRATIVE: CASE EVENT DATE: 20241001
